FAERS Safety Report 19922866 (Version 1)
Quarter: 2021Q4

REPORT INFORMATION
  Report Type: Spontaneous
  Country: US (occurrence: US)
  Receive Date: 20211005
  Receipt Date: 20211005
  Transmission Date: 20220303
  Serious: Yes (Other)
  Sender: FDA-Public Use
  Company Number: None

PATIENT
  Age: 30 Year
  Sex: Female
  Weight: 80.1 kg

DRUGS (5)
  1. ZICAM EXTREME CONGESTION RELIEF (OXYMETAZOLINE HYDROCHLORIDE) [Suspect]
     Active Substance: OXYMETAZOLINE HYDROCHLORIDE
     Indication: Nasal congestion
     Route: 055
     Dates: start: 20211005, end: 20211005
  2. SERTRALINE [Concomitant]
     Active Substance: SERTRALINE HYDROCHLORIDE
  3. ZYRTEC [Concomitant]
     Active Substance: CETIRIZINE HYDROCHLORIDE
  4. VITAMIN C [Concomitant]
     Active Substance: ASCORBIC ACID
  5. VITAMINS [Concomitant]
     Active Substance: VITAMINS

REACTIONS (2)
  - Ageusia [None]
  - Anosmia [None]

NARRATIVE: CASE EVENT DATE: 20211005
